FAERS Safety Report 4909943-3 (Version None)
Quarter: 2006Q1

REPORT INFORMATION
  Report Type: 
  Country: None (occurrence: None)
  Receive Date: 20060208
  Receipt Date: 20060126
  Transmission Date: 20060701
  Serious: Yes (Death, Life-Threatening, Hospitalization)
  Sender: FDA-Public Use
  Company Number: 2006013488

PATIENT
  Age: 51 Year
  Sex: Female
  Weight: 70 kg

DRUGS (6)
  1. LIPITOR [Suspect]
     Indication: HYPERLIPIDAEMIA
     Dosage: 10 MG, ORAL
     Route: 048
     Dates: start: 20051107, end: 20060122
  2. PREMARIN [Suspect]
     Indication: MENOPAUSE
     Dosage: 0.625 MG (1 IN 1 D), ORAL
     Route: 048
     Dates: start: 20051108, end: 20060125
  3. LANSOPRAZOLE [Suspect]
     Indication: REFLUX OESOPHAGITIS
     Dosage: 30 MG (1D), ORAL
     Route: 048
     Dates: start: 20051107, end: 20060122
  4. PROVERA [Suspect]
     Indication: MENOPAUSE
     Dosage: 2.5 MG (1D), ORAL
     Route: 048
     Dates: start: 20051108, end: 20060125
  5. ZOLPIDEM TARTRATE [Concomitant]
  6. DORAL [Concomitant]

REACTIONS (5)
  - COMA HEPATIC [None]
  - HAEMODIALYSIS [None]
  - HEPATITIS FULMINANT [None]
  - RENAL DISORDER [None]
  - THROMBOSIS [None]
